FAERS Safety Report 6404214-0 (Version None)
Quarter: 2009Q4

REPORT INFORMATION
  Report Type: 
  Country: None (occurrence: None)
  Receive Date: 20091016
  Receipt Date: 20091007
  Transmission Date: 20100525
  Serious: Yes (Hospitalization)
  Sender: FDA-Public Use
  Company Number: FR-PFIZER INC-2009279322

PATIENT
  Age: 87 Year

DRUGS (10)
  1. TAHOR [Suspect]
     Dosage: 80 MG, UNK
     Route: 048
     Dates: start: 20090528, end: 20090622
  2. KARDEGIC [Suspect]
     Indication: CEREBROVASCULAR ACCIDENT
     Dosage: 160 MG, UNK
     Route: 048
     Dates: start: 20090528, end: 20090628
  3. SERMION [Concomitant]
     Dosage: UNK
     Route: 048
     Dates: end: 20090622
  4. DI-ACTANE [Concomitant]
     Dosage: 200 MG, 2X/DAY
     Route: 048
     Dates: end: 20090622
  5. TENSTATEN [Concomitant]
     Indication: HYPERTENSION
     Dosage: UNK
     Route: 048
     Dates: end: 20090622
  6. ALDACTAZIDE [Concomitant]
     Indication: HYPERTENSION
     Dosage: UNK
     Route: 048
     Dates: end: 20090622
  7. DOLIPRANE [Concomitant]
     Dosage: UNK
     Route: 048
  8. DIOVENOR [Concomitant]
     Dosage: UNK
     Route: 048
  9. GANFORT [Concomitant]
     Indication: GLAUCOMA
     Dosage: 300 UG/ML + 5 MG/ML
     Route: 047
  10. DI-ANTALVIC [Concomitant]
     Dosage: UNK
     Route: 048
     Dates: end: 20090622

REACTIONS (2)
  - AGRANULOCYTOSIS [None]
  - ANAEMIA [None]
